FAERS Safety Report 10048865 (Version 1)
Quarter: 2014Q1

REPORT INFORMATION
  Report Type: Report from Study
  Country: US (occurrence: US)
  Receive Date: 20140331
  Receipt Date: 20140331
  Transmission Date: 20141002
  Serious: Yes (Hospitalization, Other)
  Sender: FDA-Public Use
  Company Number: US-ABBVIE-14P-163-1215873-00

PATIENT
  Age: 48 Year
  Sex: Female
  Weight: 70.82 kg

DRUGS (4)
  1. HUMIRA [Suspect]
     Indication: PSORIASIS
     Route: 058
     Dates: end: 201309
  2. GABAPENTIN [Concomitant]
     Indication: DIABETIC NEUROPATHY
  3. TRAMADOL [Concomitant]
     Indication: DIABETIC NEUROPATHY
  4. NOVOLIN [Concomitant]
     Indication: DIABETES MELLITUS
     Dosage: 40U IN AM 30U IN PM

REACTIONS (8)
  - Loss of consciousness [Recovered/Resolved]
  - Fall [Recovered/Resolved]
  - Contusion [Recovered/Resolved]
  - Concussion [Recovered/Resolved]
  - Rotator cuff syndrome [Recovering/Resolving]
  - Ligament sprain [Recovering/Resolving]
  - Neck pain [Recovering/Resolving]
  - Musculoskeletal pain [Recovering/Resolving]
